FAERS Safety Report 11835352 (Version 1)
Quarter: 2015Q4

REPORT INFORMATION
  Report Type: Spontaneous
  Country: US (occurrence: None)
  Receive Date: 20151214
  Receipt Date: 20151214
  Transmission Date: 20160305
  Serious: Yes (Hospitalization, Other)
  Sender: FDA-Public Use
  Company Number: None

PATIENT
  Age: 46 Year
  Sex: Female
  Weight: 47.63 kg

DRUGS (12)
  1. GLUCOPHAGE [Concomitant]
     Active Substance: METFORMIN HYDROCHLORIDE
  2. METHOTREXATE [Concomitant]
     Active Substance: METHOTREXATE
  3. MULTI VITAMIN [Concomitant]
     Active Substance: VITAMINS
  4. PROZAC [Concomitant]
     Active Substance: FLUOXETINE HYDROCHLORIDE
  5. SYNTHROID [Concomitant]
     Active Substance: LEVOTHYROXINE SODIUM
  6. VITAMIN C [Concomitant]
     Active Substance: ASCORBIC ACID
  7. LAMOTROGINE [Concomitant]
     Active Substance: LAMOTRIGINE
  8. MIRALAX [Suspect]
     Active Substance: POLYETHYLENE GLYCOL 3350
     Indication: IMPAIRED GASTRIC EMPTYING
     Dosage: 2 TABLESPOONS/DAY ONCE DAILY TAKEN BY MOUTH
     Route: 048
     Dates: start: 20150620, end: 20151101
  9. BIOTIN [Concomitant]
     Active Substance: BIOTIN
  10. PREVACID [Concomitant]
     Active Substance: LANSOPRAZOLE
  11. LENSES (LANICLANOTIDE) SP [Concomitant]
  12. CLANAZAPAM [Concomitant]

REACTIONS (3)
  - Loss of consciousness [None]
  - Seizure [None]
  - Tremor [None]

NARRATIVE: CASE EVENT DATE: 20150620
